FAERS Safety Report 4398793-5 (Version None)
Quarter: 2004Q3

REPORT INFORMATION
  Report Type: 
  Country: None (occurrence: None)
  Receive Date: 20040712
  Receipt Date: 20040629
  Transmission Date: 20050211
  Serious: Yes (Death)
  Sender: FDA-Public Use
  Company Number: 163-20785-04050301

PATIENT
  Age: 47 Year
  Sex: Female

DRUGS (2)
  1. THALOMID [Suspect]
     Indication: METASTATIC MALIGNANT MELANOMA
     Dosage: 200 MG, AT BEDTIME, ORAL
     Route: 048
     Dates: start: 20020901, end: 20030101
  2. INTERFERON ALFA-2B (INTERFERON ALFA-2B) [Suspect]

REACTIONS (1)
  - CEREBRAL HAEMORRHAGE [None]
